FAERS Safety Report 14368537 (Version 19)
Quarter: 2019Q3

REPORT INFORMATION
  Report Type: Spontaneous
  Country: US (occurrence: US)
  Receive Date: 20180109
  Receipt Date: 20190806
  Transmission Date: 20191004
  Serious: Yes (Hospitalization)
  Sender: FDA-Public Use
  Company Number: US-ACTELION-A-NJ2018-165353

PATIENT
  Age: 56 Year
  Sex: Male
  Weight: 72.56 kg

DRUGS (6)
  1. OPSUMIT [Suspect]
     Active Substance: MACITENTAN
     Indication: PULMONARY ARTERIAL HYPERTENSION
     Dosage: 10 MG, QD
     Route: 048
     Dates: start: 20160104
  2. XARELTO [Concomitant]
     Active Substance: RIVAROXABAN
  3. AMLODIPINE [Concomitant]
     Active Substance: AMLODIPINE BESYLATE
  4. ADCIRCA [Concomitant]
     Active Substance: TADALAFIL
  5. ADEMPAS [Concomitant]
     Active Substance: RIOCIGUAT
  6. REMODULIN [Concomitant]
     Active Substance: TREPROSTINIL
     Route: 042

REACTIONS (36)
  - Lung transplant [Unknown]
  - Device occlusion [Unknown]
  - Vascular device infection [Recovered/Resolved]
  - Haemorrhage [Unknown]
  - Abdominal pain [Not Recovered/Not Resolved]
  - Atrial flutter [Unknown]
  - Vomiting [Recovered/Resolved]
  - Pulmonary arterial hypertension [Unknown]
  - Dizziness [Unknown]
  - Packed red blood cell transfusion [Recovered/Resolved with Sequelae]
  - Dyspnoea [Not Recovered/Not Resolved]
  - Syncope [Not Recovered/Not Resolved]
  - Anaemia [Unknown]
  - Chills [Recovered/Resolved]
  - General physical health deterioration [Unknown]
  - Catheter site related reaction [Unknown]
  - Melaena [Unknown]
  - Catheter site discharge [Unknown]
  - Renal haemorrhage [Unknown]
  - Bacteraemia [Recovered/Resolved]
  - Biopsy lung [Unknown]
  - Transfusion [Unknown]
  - Disease progression [Unknown]
  - Anticoagulation drug level above therapeutic [Unknown]
  - Bradycardia [Recovered/Resolved]
  - Hospitalisation [Unknown]
  - Presyncope [Recovered/Resolved]
  - Blood loss anaemia [Recovered/Resolved with Sequelae]
  - Oedema peripheral [Not Recovered/Not Resolved]
  - Cardiogenic shock [Not Recovered/Not Resolved]
  - Laboratory test abnormal [Unknown]
  - Acute right ventricular failure [Not Recovered/Not Resolved]
  - Weight increased [Not Recovered/Not Resolved]
  - Blood culture positive [Recovered/Resolved]
  - Hypotension [Unknown]
  - Oedema [Unknown]

NARRATIVE: CASE EVENT DATE: 20160718
